FAERS Safety Report 18220380 (Version 1)
Quarter: 2020Q3

REPORT INFORMATION
  Report Type: Spontaneous
  Country: CN (occurrence: CN)
  Receive Date: 20200902
  Receipt Date: 20200902
  Transmission Date: 20201103
  Serious: Yes (Other)
  Sender: FDA-Public Use
  Company Number: CN-BEH-2020121932

PATIENT
  Age: 62 Year
  Sex: Female
  Weight: 59 kg

DRUGS (2)
  1. ALBUMINAR?20 [Suspect]
     Active Substance: ALBUMIN HUMAN
     Indication: NUTRITIONAL CONDITION ABNORMAL
     Dosage: 20 GRAM, QD
     Route: 042
     Dates: start: 20200104, end: 20200105
  2. ALBUMINAR?20 [Suspect]
     Active Substance: ALBUMIN HUMAN
     Indication: BLOOD ALBUMIN DECREASED
     Dosage: 20 GRAM, QD
     Route: 042
     Dates: start: 20200107, end: 20200108

REACTIONS (5)
  - Dyspnoea [Recovered/Resolved]
  - Chest discomfort [Recovered/Resolved]
  - Dyspnoea [Recovered/Resolved]
  - Pyrexia [Unknown]
  - Pneumonia [Unknown]

NARRATIVE: CASE EVENT DATE: 20200107
